FAERS Safety Report 4277111-7 (Version None)
Quarter: 2004Q1

REPORT INFORMATION
  Report Type: 
  Country: None (occurrence: None)
  Receive Date: 20040120
  Receipt Date: 20040120
  Transmission Date: 20041129
  Serious: No
  Sender: FDA-Public Use
  Company Number: None

PATIENT
  Age: 50 Year
  Sex: Female
  Weight: 68.0396 kg

DRUGS (4)
  1. SYNTHROID [Suspect]
     Indication: GOITRE
     Dosage: .125 MG/DAY
     Dates: start: 20010701, end: 20010909
  2. NEXIUM [Concomitant]
  3. PRILOSEC [Concomitant]
  4. PEPCID AC [Concomitant]

REACTIONS (9)
  - CIRCULATORY COLLAPSE [None]
  - FATIGUE [None]
  - GASTROOESOPHAGEAL REFLUX DISEASE [None]
  - HYPOTONIA [None]
  - OESOPHAGEAL INJURY [None]
  - OESOPHAGEAL SPASM [None]
  - SALIVARY HYPERSECRETION [None]
  - STOMACH DISCOMFORT [None]
  - WEIGHT DECREASED [None]
